FAERS Safety Report 9222829 (Version 1)
Quarter: 2013Q1

REPORT INFORMATION
  Report Type: Spontaneous
  Country: US (occurrence: None)
  Receive Date: 20120914
  Receipt Date: 20120914
  Transmission Date: 20140127
  Serious: Yes (Other)
  Sender: FDA-Public Use
  Company Number: JPI-P-020762

PATIENT
  Age: 37 Year
  Sex: Female
  Weight: 62.6 kg

DRUGS (20)
  1. XYREM (500 MILLIGRAM/MILLILITERS, SOLUTION) (SODIUM OXYBATE) [Suspect]
     Indication: CATAPLEXY
     Route: 048
     Dates: start: 20111228, end: 20120309
  2. POTASSIUM [Suspect]
  3. CAFFEINE [Suspect]
     Indication: SOMNOLENCE
  4. PRAMIPEXOLE (1 MILLIGRAM) [Concomitant]
  5. LITHIUM (TABLETS) [Concomitant]
  6. SERTRALINE HYDROCHLORIDE (TABLETS) [Concomitant]
  7. LAMOTRIGINE (UNKNOWN0 [Concomitant]
  8. CLONAZEPAM [Concomitant]
  9. GABAPENTIN (UNKNOWN) [Concomitant]
  10. ONABOTULINUMTOXINA (INJECTION) [Concomitant]
  11. ELETRIPTAN HYDROBROMIDE (UNKNOWN) [Concomitant]
  12. ARMODADFINIL (UNKNOWN) [Concomitant]
  13. PROPRANOLOL (UNKNOWN) [Concomitant]
  14. MAGNESIUM [Concomitant]
  15. CALCIUM [Concomitant]
  16. VITAMIN D3 [Concomitant]
  17. VITAMIN C [Concomitant]
  18. FEXOFENADINE [Concomitant]
  19. CETRIZINE [Concomitant]
  20. MELATONIN [Concomitant]

REACTIONS (19)
  - Weight decreased [None]
  - Impaired work ability [None]
  - Ingrowing nail [None]
  - Gingival recession [None]
  - Anxiety [None]
  - Seasonal allergy [None]
  - Eye pruritus [None]
  - Ocular hyperaemia [None]
  - Lacrimation increased [None]
  - Tremor [None]
  - Condition aggravated [None]
  - Muscular weakness [None]
  - Coordination abnormal [None]
  - Dyskinesia [None]
  - Hypoaesthesia [None]
  - Pain in extremity [None]
  - Paraesthesia [None]
  - Insomnia [None]
  - Somnolence [None]
